FAERS Safety Report 10789696 (Version 1)
Quarter: 2015Q1

REPORT INFORMATION
  Report Type: Spontaneous
  Country: DE (occurrence: DE)
  Receive Date: 20150212
  Receipt Date: 20150212
  Transmission Date: 20150721
  Serious: Yes (Other)
  Sender: FDA-Public Use
  Company Number: ALCN2015DE001025

PATIENT
  Sex: Female

DRUGS (2)
  1. VITALUX PLUS [Suspect]
     Active Substance: VITAMINS
     Route: 048
  2. CANDECOR [Concomitant]

REACTIONS (3)
  - Ocular hyperaemia [Unknown]
  - Drug hypersensitivity [None]
  - Blood pressure increased [Recovered/Resolved]
